FAERS Safety Report 4823556-3 (Version None)
Quarter: 2005Q4

REPORT INFORMATION
  Report Type: 
  Country: None (occurrence: None)
  Receive Date: 20051031
  Receipt Date: 20051024
  Transmission Date: 20060501
  Serious: Yes (Life-Threatening, Hospitalization)
  Sender: FDA-Public Use
  Company Number: 2005-01826

PATIENT
  Age: 78 Year
  Sex: Male

DRUGS (5)
  1. IMMUCYST [Suspect]
     Indication: BLADDER CANCER
     Dosage: (81.0 MG), I.VES.
     Route: 043
     Dates: start: 20050810, end: 20050810
  2. HYDANTOL F [Concomitant]
  3. FLURBIPROFEN [Concomitant]
  4. DICLOFENAC SODIUM [Concomitant]
  5. TAMSULOSIN HYDROCHLORIDE [Concomitant]

REACTIONS (3)
  - PAIN [None]
  - PYREXIA [None]
  - TUBERCULOSIS [None]
